FAERS Safety Report 12434571 (Version 1)
Quarter: 2016Q2

REPORT INFORMATION
  Report Type: Spontaneous
  Country: AU (occurrence: AU)
  Receive Date: 20160603
  Receipt Date: 20160603
  Transmission Date: 20160815
  Serious: Yes (Hospitalization)
  Sender: FDA-Public Use
  Company Number: AU-009507513-1605AUS011527

PATIENT
  Age: 76 Year
  Sex: Male

DRUGS (2)
  1. ENGERIX-B [Suspect]
     Active Substance: HEPATITIS B VIRUS SUBTYPE ADW2 HBSAG SURFACE PROTEIN ANTIGEN
  2. MIRTAZAPINE. [Suspect]
     Active Substance: MIRTAZAPINE
     Dosage: 30 MG, DAILY, AT NIGHT
     Route: 048

REACTIONS (3)
  - Dysphonia [Unknown]
  - Off label use [Unknown]
  - Tremor [Unknown]
